FAERS Safety Report 9908884 (Version 2)
Quarter: 2014Q3

REPORT INFORMATION
  Report Type: Spontaneous
  Country: US (occurrence: None)
  Receive Date: 20140212
  Receipt Date: 20140708
  Transmission Date: 20150326
  Serious: Yes (Hospitalization, Other)
  Sender: FDA-Public Use
  Company Number: 2014-US-001224

PATIENT
  Age: 58 Year
  Sex: Female
  Weight: 79.4 kg

DRUGS (3)
  1. XYREM [Suspect]
     Active Substance: SODIUM OXYBATE
     Indication: NARCOLEPSY
     Dosage: DOSE ADJUSTMENTS
     Route: 048
     Dates: start: 201105, end: 2011
  2. METHOTREXATE [Concomitant]
     Active Substance: METHOTREXATE
  3. XYREM [Suspect]
     Active Substance: SODIUM OXYBATE
     Indication: CATAPLEXY
     Dosage: DOSE ADJUSTMENTS
     Route: 048
     Dates: start: 201105, end: 2011

REACTIONS (2)
  - Pneumonia viral [None]
  - Respiratory syncytial virus infection [None]

NARRATIVE: CASE EVENT DATE: 201401
